FAERS Safety Report 18235071 (Version 2)
Quarter: 2021Q3

REPORT INFORMATION
  Report Type: Spontaneous
  Country: DE (occurrence: DE)
  Receive Date: 20200905
  Receipt Date: 20210713
  Transmission Date: 20211014
  Serious: Yes (Life-Threatening, Hospitalization, Other)
  Sender: FDA-Public Use
  Company Number: DE-AUROBINDO-AUR-APL-2017-08046

PATIENT
  Age: 40 Year
  Sex: Male

DRUGS (11)
  1. MIRTAZAPINE. [Interacting]
     Active Substance: MIRTAZAPINE
     Indication: MAJOR DEPRESSION
     Dosage: 60 MILLIGRAM, DAILY
     Route: 048
     Dates: start: 2005, end: 2005
  2. BIPERIDEN [Interacting]
     Active Substance: BIPERIDEN
     Indication: PSYCHOTIC DISORDER
  3. MIRTAZAPINE. [Suspect]
     Active Substance: MIRTAZAPINE
     Indication: PARKINSONISM
     Dosage: 45 MILLIGRAM, DAILY
     Route: 048
     Dates: start: 2005, end: 2005
  4. RISPERIDONE. [Interacting]
     Active Substance: RISPERIDONE
     Dosage: 3 MILLIGRAM, DAILY
     Route: 065
     Dates: start: 2005, end: 2005
  5. BIPERIDEN [Interacting]
     Active Substance: BIPERIDEN
     Indication: MAJOR DEPRESSION
  6. RISPERIDONE. [Interacting]
     Active Substance: RISPERIDONE
     Indication: SCHIZOPHRENIA
     Dosage: 7 MILLIGRAM, DAILY
     Route: 065
  7. MIRTAZAPINE. [Interacting]
     Active Substance: MIRTAZAPINE
     Indication: PSYCHOTIC DISORDER
  8. BIPERIDEN [Interacting]
     Active Substance: BIPERIDEN
     Indication: PARKINSONISM
     Dosage: 2 MILLIGRAM, DAILY
     Route: 065
     Dates: start: 2005
  9. BIPERIDEN [Interacting]
     Active Substance: BIPERIDEN
     Indication: SCHIZOPHRENIA
  10. MIRTAZAPINE. [Interacting]
     Active Substance: MIRTAZAPINE
     Indication: SCHIZOPHRENIA
  11. RISPERIDONE. [Interacting]
     Active Substance: RISPERIDONE
     Indication: PARKINSONISM
     Dosage: 8 MILLIGRAM, DAILY
     Route: 065
     Dates: start: 2005, end: 2005

REACTIONS (3)
  - Pulmonary embolism [Recovered/Resolved]
  - Drug interaction [Recovered/Resolved]
  - Rhabdomyolysis [Recovered/Resolved]

NARRATIVE: CASE EVENT DATE: 2005
